FAERS Safety Report 7134000-8 (Version None)
Quarter: 2010Q4

REPORT INFORMATION
  Report Type: 
  Country: None (occurrence: None)
  Receive Date: 20101203
  Receipt Date: 20101119
  Transmission Date: 20110411
  Serious: Yes (Hospitalization)
  Sender: FDA-Public Use
  Company Number: FR-RANBAXY-2010R1-39820

PATIENT
  Age: 45 Year
  Sex: Female

DRUGS (1)
  1. OXCARBAZEPINE [Suspect]
     Indication: PARTIAL SEIZURES
     Dosage: UNK
     Route: 065

REACTIONS (1)
  - DRUG RASH WITH EOSINOPHILIA AND SYSTEMIC SYMPTOMS [None]
